FAERS Safety Report 6863225-1 (Version None)
Quarter: 2010Q3

REPORT INFORMATION
  Report Type: 
  Country: None (occurrence: None)
  Receive Date: 20100721
  Receipt Date: 20100712
  Transmission Date: 20110219
  Serious: Yes (Hospitalization)
  Sender: FDA-Public Use
  Company Number: PHHO2010BR10781

PATIENT
  Sex: Male

DRUGS (3)
  1. CYCLOSPORINE [Suspect]
     Indication: RENAL TRANSPLANT
     Dosage: 100 MG DAIY
     Route: 048
     Dates: start: 20091204
  2. MYCOPHENOLATE MOFETIL [Suspect]
     Indication: RENAL TRANSPLANT
     Dosage: UNK
     Dates: start: 20091204
  3. PREDNISONE [Suspect]
     Indication: RENAL TRANSPLANT
     Dosage: UNK
     Dates: start: 20091204

REACTIONS (8)
  - ABDOMINAL PAIN [None]
  - BACK PAIN [None]
  - CONGENITAL CYSTIC KIDNEY DISEASE [None]
  - KIDNEY ENLARGEMENT [None]
  - KLEBSIELLA TEST POSITIVE [None]
  - PYREXIA [None]
  - RENAL CYST INFECTION [None]
  - URINARY TRACT INFECTION [None]
